FAERS Safety Report 15111452 (Version 1)
Quarter: 2018Q3

REPORT INFORMATION
  Report Type: Spontaneous
  Country: CN (occurrence: CN)
  Receive Date: 20180705
  Receipt Date: 20180705
  Transmission Date: 20181010
  Serious: Yes (Hospitalization)
  Sender: FDA-Public Use
  Company Number: CN-FRESENIUS KABI-FK201807522

PATIENT
  Age: 12 Year
  Sex: Male
  Weight: 41 kg

DRUGS (8)
  1. ATROPINE. [Concomitant]
     Active Substance: ATROPINE
     Indication: ARRHYTHMIA PROPHYLAXIS
     Dosage: 0,5 MG
     Route: 042
  2. FENTANYL. [Concomitant]
     Active Substance: FENTANYL
     Indication: GENERAL ANAESTHESIA
     Dosage: 4MCG/KG
     Route: 042
  3. CISATRACURIUM. [Concomitant]
     Active Substance: CISATRACURIUM
     Indication: GENERAL ANAESTHESIA
     Dosage: 0,25 MG/KG
     Route: 042
  4. NEOSTIGMINE (MANUFACTURER UNKNOWN) (NEOSTIGMINE METHYLSULFATE) [Suspect]
     Active Substance: NEOSTIGMINE METHYLSULFATE
     Indication: NEUROMUSCULAR BLOCKADE REVERSAL
     Route: 042
  5. DIPRIVAN [Concomitant]
     Active Substance: PROPOFOL
     Indication: GENERAL ANAESTHESIA
     Dosage: 1,5 MG/KG
     Route: 042
  6. MIDAZOLAM [Concomitant]
     Active Substance: MIDAZOLAM HYDROCHLORIDE
     Indication: PRODUCT USED FOR UNKNOWN INDICATION
     Route: 042
  7. SEVOFLURANE. [Concomitant]
     Active Substance: SEVOFLURANE
     Indication: GENERAL ANAESTHESIA
     Dosage: 1 TO 1,5 PERCENT
     Route: 065
  8. ROPIVACAINE [Concomitant]
     Active Substance: ROPIVACAINE
     Indication: NERVE BLOCK
     Dosage: 0,375 PERCENT

REACTIONS (2)
  - Pneumothorax [None]
  - Non-cardiogenic pulmonary oedema [Recovered/Resolved]
